FAERS Safety Report 13390034 (Version 1)
Quarter: 2017Q1

REPORT INFORMATION
  Report Type: Spontaneous
  Country: US (occurrence: US)
  Receive Date: 20170330
  Receipt Date: 20170330
  Transmission Date: 20170429
  Serious: Yes (Disabling)
  Sender: FDA-Public Use
  Company Number: None

PATIENT
  Age: 60 Year
  Sex: Male
  Weight: 74.84 kg

DRUGS (3)
  1. ONE A DAY VITAMINS [Concomitant]
  2. TYLENOL [Concomitant]
     Active Substance: ACETAMINOPHEN
  3. CLINDAMYCIN. [Suspect]
     Active Substance: CLINDAMYCIN
     Indication: SINUSITIS
     Dosage: 30 PILLS 1 PILL EVERY 6 HOURS BY MOUTH
     Route: 048
     Dates: start: 20160220, end: 20160228

REACTIONS (8)
  - Scab [None]
  - Pain [None]
  - Peripheral swelling [None]
  - Skin burning sensation [None]
  - Pruritus [None]
  - Urticaria [None]
  - Autoimmune disorder [None]
  - Skin disorder [None]

NARRATIVE: CASE EVENT DATE: 20160225
